FAERS Safety Report 9573802 (Version 1)
Quarter: 2013Q4

REPORT INFORMATION
  Report Type: Spontaneous
  Country: US (occurrence: US)
  Receive Date: 20131001
  Receipt Date: 20131001
  Transmission Date: 20140711
  Serious: Yes (Hospitalization)
  Sender: FDA-Public Use
  Company Number: US-PFIZER INC-2013278148

PATIENT
  Age: 5 Year
  Sex: Male

DRUGS (5)
  1. PREDNISONE [Suspect]
     Indication: POLYARTERITIS NODOSA
     Dosage: 40 - 60 MG, DAILY
     Dates: start: 1990
  2. PREDNISONE [Suspect]
     Dosage: 40 MG, DAILY
     Dates: start: 199911
  3. METHOTREXATE SODIUM [Suspect]
     Indication: POLYARTERITIS NODOSA
     Dosage: 25 MG, WEEKLY
     Route: 058
     Dates: start: 199311, end: 200406
  4. CYCLOPHOSPHAMIDE [Concomitant]
     Indication: POLYARTERITIS NODOSA
     Dosage: 2 MG/KG, DAILY
     Route: 048
     Dates: end: 199109
  5. AZATHIOPRINE [Concomitant]
     Indication: POLYARTERITIS NODOSA
     Dosage: 2.5 MG/KG, DAILY

REACTIONS (2)
  - Disease recurrence [Recovered/Resolved]
  - Drug ineffective [Unknown]
